FAERS Safety Report 25324351 (Version 1)
Quarter: 2025Q2

REPORT INFORMATION
  Report Type: Spontaneous
  Country: JP (occurrence: JP)
  Receive Date: 20250516
  Receipt Date: 20250516
  Transmission Date: 20250716
  Serious: Yes (Hospitalization)
  Sender: MERCK SHARP & DOHME LLC
  Company Number: JP-009507513-2284756

PATIENT
  Age: 5 Decade
  Sex: Female

DRUGS (2)
  1. KEYTRUDA [Suspect]
     Active Substance: PEMBROLIZUMAB
     Indication: Cervix carcinoma
     Dosage: 200MG EVERY 3 WEEKS
     Route: 041
     Dates: start: 202504
  2. CISPLATIN [Concomitant]
     Active Substance: CISPLATIN
     Indication: Cervix carcinoma
     Dates: start: 202504

REACTIONS (1)
  - Thrombophlebitis migrans [Recovering/Resolving]

NARRATIVE: CASE EVENT DATE: 20250501
